FAERS Safety Report 5606785-0 (Version None)
Quarter: 2008Q1

REPORT INFORMATION
  Report Type: 
  Country: None (occurrence: None)
  Receive Date: 20080129
  Receipt Date: 20080118
  Transmission Date: 20080703
  Serious: Yes (Other)
  Sender: FDA-Public Use
  Company Number: US-RANBAXY-2008RR-12693

PATIENT

DRUGS (3)
  1. ASPIRIN TABLETS BP 300MG [Suspect]
     Indication: PROPHYLAXIS
     Dosage: 81 MG, QD
  2. IBUPROFEN [Suspect]
     Indication: PYREXIA
     Dosage: 300 MG, QID
  3. IBUPROFEN [Suspect]
     Indication: PAIN

REACTIONS (2)
  - NEPHRITIS INTERSTITIAL [None]
  - RENAL FAILURE ACUTE [None]
